FAERS Safety Report 5441211-6 (Version None)
Quarter: 2007Q3

REPORT INFORMATION
  Report Type: 
  Country: None (occurrence: None)
  Receive Date: 20070901
  Receipt Date: 20070820
  Transmission Date: 20080115
  Serious: Yes (Disabling, Other)
  Sender: FDA-Public Use
  Company Number: GB-PFIZER INC-2007070547

PATIENT
  Age: 38 Year
  Sex: Female
  Weight: 96 kg

DRUGS (1)
  1. VARENICLINE TABLETS [Suspect]
     Indication: SMOKING CESSATION THERAPY
     Route: 048
     Dates: start: 20070514, end: 20070720

REACTIONS (1)
  - DELUSIONAL DISORDER, PERSECUTORY TYPE [None]
